FAERS Safety Report 14819910 (Version 1)
Quarter: 2018Q2

REPORT INFORMATION
  Report Type: Spontaneous
  Country: US (occurrence: US)
  Receive Date: 20180403
  Receipt Date: 20180403
  Transmission Date: 20180711
  Serious: Yes (Hospitalization, Disabling, Other)
  Sender: FDA-Public Use
  Company Number: None

PATIENT
  Sex: Female
  Weight: 74.25 kg

DRUGS (9)
  1. VITAMIN C [Concomitant]
     Active Substance: ASCORBIC ACID
  2. SALINE NASAL SPRAY [Concomitant]
     Active Substance: SODIUM CHLORIDE
  3. BOOT FOR FOOT [Concomitant]
  4. PAXIL [Concomitant]
     Active Substance: PAROXETINE HYDROCHLORIDE
  5. VITAMIN B COMPLEX [Concomitant]
     Active Substance: CYANOCOBALAMIN\DEXPANTHENOL\NIACINAMIDE\PYRIDOXINE HYDROCHLORIDE\RIBOFLAVIN 5^-PHOSPHATE SODIUM\THIAMINE HYDROCHLORIDE\VITAMIN B COMPLEX
  6. TYLENOL HEADACHES [Concomitant]
  7. LISINOPRIL. [Suspect]
     Active Substance: LISINOPRIL
     Indication: BLOOD PRESSURE INCREASED
     Dosage: ?          QUANTITY:1 TABLET(S);?
     Route: 048
     Dates: start: 20160401, end: 20180330
  8. FISH OIL [Concomitant]
     Active Substance: FISH OIL
  9. BRACES [Concomitant]

REACTIONS (8)
  - Upper-airway cough syndrome [None]
  - Pain in extremity [None]
  - Impaired quality of life [None]
  - Tendon rupture [None]
  - Cough [None]
  - Breath odour [None]
  - Tendonitis [None]
  - Choking [None]
